FAERS Safety Report 4593069-5 (Version None)
Quarter: 2005Q1

REPORT INFORMATION
  Report Type: 
  Country: None (occurrence: None)
  Receive Date: 20050301
  Receipt Date: 20050221
  Transmission Date: 20050727
  Serious: Yes (Hospitalization)
  Sender: FDA-Public Use
  Company Number: PHBS2005IE02592

PATIENT
  Sex: Female

DRUGS (2)
  1. CO-DIOVAN [Suspect]
     Dosage: VAL 80 MG/HCT 12.5 MG
  2. LITHIUM [Concomitant]

REACTIONS (1)
  - MALAISE [None]
